FAERS Safety Report 23436840 (Version 1)
Quarter: 2024Q1

REPORT INFORMATION
  Report Type: Spontaneous
  Country: GB (occurrence: GB)
  Receive Date: 20240124
  Receipt Date: 20240124
  Transmission Date: 20240410
  Serious: Yes (Death, Hospitalization)
  Sender: FDA-Public Use
  Company Number: None

PATIENT
  Age: 65 Year

DRUGS (11)
  1. APIXABAN [Suspect]
     Active Substance: APIXABAN
     Indication: Product used for unknown indication
  2. DEXAMETHASONE [Concomitant]
     Active Substance: DEXAMETHASONE
     Dates: start: 20231129
  3. ATORVASTATIN [Concomitant]
     Active Substance: ATORVASTATIN
  4. SODIUM BICARBONATE [Concomitant]
     Active Substance: SODIUM BICARBONATE
     Dosage: 2 GTT DROP(S)
     Dates: start: 20231004
  5. ALLOPURINOL [Concomitant]
     Active Substance: ALLOPURINOL
  6. ACETAMINOPHEN [Concomitant]
     Active Substance: ACETAMINOPHEN
     Dosage: 500MG TO 1G QDS
     Dates: start: 20231130
  7. LANSOPRAZOLE [Concomitant]
     Active Substance: LANSOPRAZOLE
  8. DEXAMETHASONE [Concomitant]
     Active Substance: DEXAMETHASONE
     Dates: start: 2023
  9. GABAPENTIN [Concomitant]
     Active Substance: GABAPENTIN
     Dosage: 100MG TDS TO START AND INCREASE UPTO 400MG TDS AS PER NEUROLOGY
     Dates: start: 20231002
  10. CODEINE [Concomitant]
     Active Substance: CODEINE
     Dosage: TDS TO QDS
     Dates: start: 20231130
  11. FLUCLOXACILLIN [Concomitant]
     Active Substance: FLUCLOXACILLIN
     Dates: start: 20231206

REACTIONS (5)
  - Haemorrhage intracranial [Fatal]
  - Loss of consciousness [Fatal]
  - Brain herniation [Fatal]
  - Cerebral mass effect [Fatal]
  - Cerebral haematoma [Fatal]
